FAERS Safety Report 9199058 (Version 1)
Quarter: 2013Q1

REPORT INFORMATION
  Report Type: Spontaneous
  Country: US (occurrence: US)
  Receive Date: 20130329
  Receipt Date: 20130329
  Transmission Date: 20140127
  Serious: No
  Sender: FDA-Public Use
  Company Number: US-009507513-1303USA006223

PATIENT
  Sex: Male
  Weight: 94.33 kg

DRUGS (3)
  1. BOCEPREVIR [Suspect]
     Indication: HEPATITIS C
     Dosage: UNK
     Route: 048
  2. PEGINTERFERON ALFA-2A [Suspect]
     Indication: HEPATITIS C
     Dosage: 90 MICROGRAM, QD
  3. RIBAPAK [Suspect]
     Indication: HEPATITIS C
     Dosage: 1200 MG, QD (DIVIDED DOSES)

REACTIONS (2)
  - Skin ulcer [Unknown]
  - Weight decreased [Unknown]
